FAERS Safety Report 15967998 (Version 3)
Quarter: 2019Q3

REPORT INFORMATION
  Report Type: Report from Study
  Country: CA (occurrence: CA)
  Receive Date: 20190215
  Receipt Date: 20190917
  Transmission Date: 20191004
  Serious: Yes (Death, Hospitalization, Other)
  Sender: FDA-Public Use
  Company Number: PHHY2019CA033875

PATIENT
  Age: 87 Year
  Sex: Male

DRUGS (4)
  1. SANDOSTATIN LAR DEPOT [Suspect]
     Active Substance: OCTREOTIDE ACETATE
     Dosage: 30 MG, QMO (EVERY 4 WEEKS)
     Route: 030
     Dates: start: 20190404
  2. SANDOSTATIN LAR DEPOT [Suspect]
     Active Substance: OCTREOTIDE ACETATE
     Indication: NEUROENDOCRINE CARCINOMA
     Dosage: 30 MG, QMO (EVERY 4 WEEKS)
     Route: 030
     Dates: start: 2004
  3. SANDOSTATIN LAR DEPOT [Suspect]
     Active Substance: OCTREOTIDE ACETATE
     Dosage: 30 MG, QMO (EVERY 4 WEEKS)
     Route: 030
     Dates: start: 20120628
  4. FLUDROCORTISONE [Concomitant]
     Active Substance: FLUDROCORTISONE
     Indication: PRODUCT USED FOR UNKNOWN INDICATION
     Dosage: UNK UNK, QD
     Route: 065

REACTIONS (15)
  - Dyspnoea [Recovering/Resolving]
  - Malaise [Unknown]
  - Fall [Recovering/Resolving]
  - Needle issue [Unknown]
  - Skin laceration [Unknown]
  - Atrial flutter [Unknown]
  - Anxiety [Unknown]
  - Urinary incontinence [Unknown]
  - Dehydration [Unknown]
  - Asthenia [Recovering/Resolving]
  - Tachycardia [Unknown]
  - Death [Fatal]
  - Fluid retention [Recovering/Resolving]
  - Contusion [Unknown]
  - Hypotension [Unknown]

NARRATIVE: CASE EVENT DATE: 2019
